FAERS Safety Report 5674488-2 (Version None)
Quarter: 2008Q2

REPORT INFORMATION
  Report Type: 
  Country: None (occurrence: None)
  Receive Date: 20080303
  Receipt Date: 20070420
  Transmission Date: 20081010
  Serious: Yes (Hospitalization)
  Sender: FDA-Public Use
  Company Number: MK-6032718

PATIENT
  Age: 16 Year
  Sex: Female

DRUGS (2)
  1. IBDIBEN (ISOTRETINOIN) [Suspect]
     Indication: ACNE
     Dosage: 40 MG;ORAL
     Route: 048
     Dates: start: 20070406, end: 20070407
  2. METFORMIN HCL [Concomitant]

REACTIONS (1)
  - URTICARIA [None]
